FAERS Safety Report 5505949-4 (Version None)
Quarter: 2007Q4

REPORT INFORMATION
  Report Type: 
  Country: None (occurrence: None)
  Receive Date: 20071102
  Receipt Date: 20071102
  Transmission Date: 20080405
  Serious: Yes (Hospitalization)
  Sender: FDA-Public Use
  Company Number: None

PATIENT
  Sex: Female
  Weight: 61 kg

DRUGS (1)
  1. TEMOZOLOMIDE [Suspect]
     Dosage: 125 MG

REACTIONS (2)
  - EMBOLISM [None]
  - THROMBOSIS [None]
